FAERS Safety Report 25115638 (Version 2)
Quarter: 2025Q1

REPORT INFORMATION
  Report Type: Spontaneous
  Country: US (occurrence: US)
  Receive Date: 20250325
  Receipt Date: 20250327
  Transmission Date: 20250408
  Serious: Yes (Hospitalization)
  Sender: ROCHE
  Company Number: US-ROCHE-10000239971

PATIENT
  Sex: Female

DRUGS (2)
  1. XOLAIR PFS [Suspect]
     Active Substance: OMALIZUMAB
     Indication: Idiopathic urticaria
     Dosage: STRENGTH: 150 MG/ML
     Route: 058
     Dates: start: 202304
  2. XOLAIR PFS [Suspect]
     Active Substance: OMALIZUMAB

REACTIONS (1)
  - Meningitis aseptic [Recovered/Resolved]
